FAERS Safety Report 7201758-9 (Version None)
Quarter: 2010Q4

REPORT INFORMATION
  Report Type: 
  Country: None (occurrence: None)
  Receive Date: 20101229
  Receipt Date: 20101220
  Transmission Date: 20110411
  Serious: Yes (Hospitalization)
  Sender: FDA-Public Use
  Company Number: US-ROCHE-749921

PATIENT
  Age: 68 Year
  Sex: Female
  Weight: 42.8 kg

DRUGS (2)
  1. BLINDED BEVACIZUMAB [Suspect]
     Indication: GLIOBLASTOMA
     Dosage: LAST DOSE PRIOR TO SAE: 29 NOVEMBER 2010,
     Route: 042
     Dates: start: 20100630
  2. TEMOZOLOMIDE [Suspect]
     Indication: GLIOBLASTOMA
     Dosage: LAST DOSE PRIOR TO SAE: 19 NOVEMBER 2010, TOTAL DOSE: 1025 MG
     Route: 048
     Dates: start: 20100630

REACTIONS (1)
  - CONVULSION [None]
